FAERS Safety Report 7482298-9 (Version None)
Quarter: 2011Q2

REPORT INFORMATION
  Report Type: 
  Country: None (occurrence: None)
  Receive Date: 20110516
  Receipt Date: 20110511
  Transmission Date: 20111010
  Serious: Yes (Other)
  Sender: FDA-Public Use
  Company Number: GB-PFIZER INC-2011100986

PATIENT
  Sex: Male

DRUGS (1)
  1. INSPRA [Suspect]

REACTIONS (1)
  - DYSPHAGIA [None]
